FAERS Safety Report 6446143-2 (Version None)
Quarter: 2009Q4

REPORT INFORMATION
  Report Type: 
  Country: None (occurrence: None)
  Receive Date: 20091119
  Receipt Date: 20091019
  Transmission Date: 20100525
  Serious: No
  Sender: FDA-Public Use
  Company Number: US-BAYER-200936973NA

PATIENT
  Age: 17 Year
  Sex: Female
  Weight: 60 kg

DRUGS (1)
  1. YAZ [Suspect]
     Indication: DYSMENORRHOEA
     Route: 048
     Dates: end: 20090801

REACTIONS (4)
  - AMENORRHOEA [None]
  - ANXIETY [None]
  - HEAT EXHAUSTION [None]
  - WEIGHT INCREASED [None]
